FAERS Safety Report 4910630-6 (Version None)
Quarter: 2006Q1

REPORT INFORMATION
  Report Type: 
  Country: None (occurrence: None)
  Receive Date: 20060210
  Receipt Date: 20060210
  Transmission Date: 20060701
  Serious: Yes (Disabling)
  Sender: FDA-Public Use
  Company Number: None

PATIENT
  Age: 54 Year
  Sex: Female
  Weight: 55.7924 kg

DRUGS (4)
  1. OXYCONTIN [Suspect]
     Indication: FIBROMYALGIA
     Dosage: 20 MG 2 TID
     Dates: start: 20020131
  2. SYNTHROID [Concomitant]
  3. SINGULAIR [Concomitant]
  4. LEXAPRO [Concomitant]

REACTIONS (4)
  - DYSPNOEA [None]
  - LYMPHADENOPATHY [None]
  - NASAL CONGESTION [None]
  - SWELLING FACE [None]
